FAERS Safety Report 5322043-6 (Version None)
Quarter: 2007Q2

REPORT INFORMATION
  Report Type: 
  Country: None (occurrence: None)
  Receive Date: 20070511
  Receipt Date: 20070508
  Transmission Date: 20071010
  Serious: Yes (Death, Hospitalization, Other)
  Sender: FDA-Public Use
  Company Number: US-BAYER-200711457BWH

PATIENT
  Age: 54 Year
  Sex: Male

DRUGS (9)
  1. NEXAVAR [Suspect]
     Indication: RENAL CELL CARCINOMA STAGE IV
     Route: 048
     Dates: start: 20050901
  2. MAGNESIUM OXIDE [Concomitant]
  3. DILANTIN [Concomitant]
  4. METOCLOPRAMIDE [Concomitant]
  5. OXYCONTIN [Concomitant]
  6. FENTANYL [Concomitant]
  7. NEXIUM [Concomitant]
  8. INHALERS [Concomitant]
  9. ATIVAN [Concomitant]

REACTIONS (11)
  - ABDOMINAL PAIN [None]
  - BLOOD COUNT ABNORMAL [None]
  - CONFUSIONAL STATE [None]
  - CONVULSION [None]
  - DUODENAL ULCER [None]
  - HAEMORRHAGE [None]
  - LABORATORY TEST ABNORMAL [None]
  - METASTASES TO BONE [None]
  - METASTASES TO LUNG [None]
  - PALLOR [None]
  - UNRESPONSIVE TO STIMULI [None]
